FAERS Safety Report 9142114 (Version 1)
Quarter: 2013Q1

REPORT INFORMATION
  Report Type: Spontaneous
  Country: US (occurrence: US)
  Receive Date: 20130305
  Receipt Date: 20130305
  Transmission Date: 20140127
  Serious: No
  Sender: FDA-Public Use
  Company Number: US-AMGEN-USASP2013010089

PATIENT
  Age: 16 Year
  Sex: Female
  Weight: 55.9 kg

DRUGS (2)
  1. ENBREL [Suspect]
     Indication: JUVENILE IDIOPATHIC ARTHRITIS
     Dosage: 50 MG, QWK
     Route: 058
     Dates: start: 20120923
  2. METHOTREXATE [Concomitant]
     Indication: JUVENILE IDIOPATHIC ARTHRITIS
     Dosage: 25 MG/ML, QWK
     Route: 058
     Dates: start: 20090919

REACTIONS (2)
  - Injection site pain [Recovered/Resolved]
  - Erythema [Unknown]
